FAERS Safety Report 11624000 (Version 1)
Quarter: 2015Q4

REPORT INFORMATION
  Report Type: Spontaneous
  Country: US (occurrence: US)
  Receive Date: 20151013
  Receipt Date: 20151013
  Transmission Date: 20160304
  Serious: No
  Sender: FDA-Public Use
  Company Number: US-JNJFOC-20150906094

PATIENT
  Age: 51 Year
  Sex: Female
  Weight: 50.8 kg

DRUGS (2)
  1. ULTRAM [Suspect]
     Active Substance: TRAMADOL HYDROCHLORIDE
     Indication: BACK DISORDER
     Dosage: 3 TIMES PER DAY-(NDC 50458-0659-60).
     Route: 048
     Dates: start: 201501
  2. MOTRIN [Interacting]
     Active Substance: IBUPROFEN
     Indication: BACK DISORDER
     Route: 048

REACTIONS (3)
  - Drug interaction [Unknown]
  - Pain [Unknown]
  - Drug ineffective [Not Recovered/Not Resolved]

NARRATIVE: CASE EVENT DATE: 20150904
